FAERS Safety Report 4399747-5 (Version None)
Quarter: 2004Q2

REPORT INFORMATION
  Report Type: 
  Country: None (occurrence: None)
  Receive Date: 20040608
  Receipt Date: 20040317
  Transmission Date: 20050107
  Serious: No
  Sender: FDA-Public Use
  Company Number: FROV000176

PATIENT
  Age: 17 Year
  Sex: Male

DRUGS (2)
  1. FROVA [Suspect]
     Indication: MIGRAINE
     Dosage: 7.5 MG ORAL
     Route: 048
     Dates: start: 20040301
  2. GEODON [Suspect]
     Indication: AUTISM

REACTIONS (1)
  - DRUG INTERACTION [None]
